FAERS Safety Report 9332145 (Version 6)
Quarter: 2013Q4

REPORT INFORMATION
  Report Type: Spontaneous
  Country: GB (occurrence: GB)
  Receive Date: 20130606
  Receipt Date: 20131108
  Transmission Date: 20140711
  Serious: Yes (Death, Other)
  Sender: FDA-Public Use
  Company Number: GB-ROCHE-1232917

PATIENT
  Age: 59 Year
  Sex: Female
  Weight: 46 kg

DRUGS (12)
  1. ROACTEMRA [Suspect]
     Indication: RHEUMATOID ARTHRITIS
     Route: 042
     Dates: start: 20130403, end: 20130501
  2. CELECOXIB [Concomitant]
  3. CO-CODAMOL [Concomitant]
  4. DEPO-MEDRONE [Concomitant]
     Indication: RHEUMATOID ARTHRITIS
     Route: 030
     Dates: start: 20130308, end: 20130308
  5. ERYTHROMYCIN [Concomitant]
     Indication: PHARYNGITIS
  6. FERROUS FUMARATE [Concomitant]
  7. FLUOXETINE [Concomitant]
     Route: 065
  8. FOLIC ACID [Concomitant]
     Route: 065
  9. LANSOPRAZOLE [Concomitant]
     Route: 065
  10. LEFLUNOMIDE [Concomitant]
  11. METHOTREXATE [Concomitant]
  12. SIMVASTATIN [Concomitant]
     Indication: BLOOD CHOLESTEROL INCREASED
     Route: 065
     Dates: start: 201304

REACTIONS (4)
  - Liver disorder [Fatal]
  - Organising pneumonia [Fatal]
  - Hepatotoxicity [Fatal]
  - Myocardial ischaemia [Fatal]
